FAERS Safety Report 5634709-9 (Version None)
Quarter: 2008Q1

REPORT INFORMATION
  Report Type: 
  Country: None (occurrence: None)
  Receive Date: 20080222
  Receipt Date: 20080212
  Transmission Date: 20080703
  Serious: Yes (Other)
  Sender: FDA-Public Use
  Company Number: US-KINGPHARMUSA00001-K200800186

PATIENT

DRUGS (5)
  1. ALTACE [Suspect]
     Dosage: 5 MG, QD
     Route: 048
     Dates: start: 20070213, end: 20080124
  2. DIGOXIN [Concomitant]
     Dosage: 250 UG, UNK
     Route: 048
     Dates: start: 20070313
  3. METFORMIN HCL [Concomitant]
     Dosage: 2 G, UNK
     Route: 048
     Dates: start: 20070313
  4. SIMVASTATIN [Concomitant]
     Dosage: 20 MG, UNK
     Dates: start: 20070313
  5. WARFARIN SODIUM [Concomitant]
     Dosage: UNK, UNK
     Route: 048
     Dates: start: 20020812

REACTIONS (1)
  - AGEUSIA [None]
